FAERS Safety Report 9011705 (Version 1)
Quarter: 2013Q1

REPORT INFORMATION
  Report Type: Spontaneous
  Country: GB (occurrence: GB)
  Receive Date: 20130107
  Receipt Date: 20130107
  Transmission Date: 20140127
  Serious: Yes (Other)
  Sender: FDA-Public Use
  Company Number: GB-ASTRAZENECA-2012SE96270

PATIENT
  Sex: Female

DRUGS (2)
  1. OMEPRAZOLE [Suspect]
     Indication: GASTRIC CANCER
     Route: 048
  2. CO-CODAMOL [Concomitant]

REACTIONS (3)
  - Decreased activity [Recovered/Resolved]
  - Asthenia [Recovered/Resolved]
  - Dizziness [Recovered/Resolved]
